FAERS Safety Report 14885518 (Version 1)
Quarter: 2018Q2

REPORT INFORMATION
  Report Type: Other
  Country: None (occurrence: IT)
  Receive Date: 20180511
  Receipt Date: 20180511
  Transmission Date: 20180711
  Serious: Yes (Other)
  Sender: FDA-Public Use
  Company Number: IT-LABORATOIRE HRA PHARMA-2047647

PATIENT
  Age: 42 Year
  Sex: Female
  Weight: 59 kg

DRUGS (1)
  1. ELLA [Suspect]
     Active Substance: ULIPRISTAL ACETATE
     Indication: POST COITAL CONTRACEPTION
     Route: 048
     Dates: start: 20180305, end: 20180305

REACTIONS (2)
  - Abortion spontaneous [None]
  - Unintended pregnancy [None]

NARRATIVE: CASE EVENT DATE: 20180326
